FAERS Safety Report 15647562 (Version 1)
Quarter: 2018Q4

REPORT INFORMATION
  Report Type: Spontaneous
  Country: US (occurrence: US)
  Receive Date: 20181122
  Receipt Date: 20181122
  Transmission Date: 20190205
  Serious: No
  Sender: FDA-Public Use
  Company Number: US-SA-2018SA315875

PATIENT
  Age: 75 Year
  Sex: Male

DRUGS (1)
  1. LANTUS SOLOSTAR [Suspect]
     Active Substance: INSULIN GLARGINE
     Indication: TYPE 1 DIABETES MELLITUS
     Dosage: 28-34 UNITS IN THE AM AND 28-34 IN THE PM
     Route: 065

REACTIONS (3)
  - Glycosylated haemoglobin increased [Unknown]
  - Device issue [Unknown]
  - Product use issue [Unknown]
